FAERS Safety Report 6060158-8 (Version None)
Quarter: 2009Q1

REPORT INFORMATION
  Report Type: 
  Country: None (occurrence: None)
  Receive Date: 20090128
  Receipt Date: 20090116
  Transmission Date: 20090719
  Serious: Yes (Life-Threatening)
  Sender: FDA-Public Use
  Company Number: 100#03#2009-00210

PATIENT
  Age: 85 Year
  Sex: Female

DRUGS (5)
  1. METFORMIN HCL [Suspect]
     Indication: TYPE 2 DIABETES MELLITUS
     Dosage: 100 MG ORAL
     Route: 048
     Dates: end: 20090112
  2. ACTRAPHANE 30/70 (INSULIN HUMAN, INSULIN ISOPHANE) [Concomitant]
  3. AMLODIPINE [Concomitant]
  4. ENALAPRIL MALEATE [Concomitant]
  5. METOPROLOL TARTRATE [Concomitant]

REACTIONS (2)
  - LACTIC ACIDOSIS [None]
  - RENAL FAILURE ACUTE [None]
